FAERS Safety Report 14297847 (Version 1)
Quarter: 2017Q4

REPORT INFORMATION
  Report Type: Spontaneous
  Country: JP (occurrence: JP)
  Receive Date: 20171218
  Receipt Date: 20171218
  Transmission Date: 20180321
  Serious: Yes (Other)
  Sender: FDA-Public Use
  Company Number: JP-PFIZER INC-2017501524

PATIENT
  Age: 14 Year
  Sex: Male
  Weight: 44.5 kg

DRUGS (1)
  1. GENOTROPIN [Suspect]
     Active Substance: SOMATROPIN
     Indication: PRADER-WILLI SYNDROME
     Dosage: 1.5 MG, 1X/DAY
     Route: 058
     Dates: start: 20170819, end: 20170914

REACTIONS (3)
  - Hepatic enzyme increased [Recovered/Resolved]
  - Weight increased [Recovered/Resolved]
  - Sleep apnoea syndrome [Recovered/Resolved]

NARRATIVE: CASE EVENT DATE: 201708
